FAERS Safety Report 11395018 (Version 1)
Quarter: 2015Q3

REPORT INFORMATION
  Report Type: Report from Study
  Country: US (occurrence: US)
  Receive Date: 20150819
  Receipt Date: 20150819
  Transmission Date: 20151125
  Serious: Yes (Death)
  Sender: FDA-Public Use
  Company Number: US-ASTELLAS-2015US021556

PATIENT
  Sex: Female

DRUGS (15)
  1. CARBOPLATIN. [Concomitant]
     Active Substance: CARBOPLATIN
     Route: 042
  2. DEXAMETHASONE. [Concomitant]
     Active Substance: DEXAMETHASONE
     Indication: PRODUCT USED FOR UNKNOWN INDICATION
     Route: 042
  3. AVASTIN [Suspect]
     Active Substance: BEVACIZUMAB
     Indication: BRONCHIAL CARCINOMA
     Route: 042
     Dates: start: 20061208
  4. OXYCONTIN [Concomitant]
     Active Substance: OXYCODONE HYDROCHLORIDE
     Indication: PRODUCT USED FOR UNKNOWN INDICATION
     Dosage: UNK UNK, UNKNOWN FREQ.
     Route: 065
  5. PEMETREXED [Concomitant]
     Active Substance: PEMETREXED
     Indication: PRODUCT USED FOR UNKNOWN INDICATION
     Route: 042
  6. ZOFRAN [Concomitant]
     Active Substance: ONDANSETRON HYDROCHLORIDE
     Indication: PRODUCT USED FOR UNKNOWN INDICATION
     Route: 042
  7. CYANOCOBALAMIN. [Concomitant]
     Active Substance: CYANOCOBALAMIN
     Indication: PRODUCT USED FOR UNKNOWN INDICATION
     Route: 030
  8. PERCOCET [Concomitant]
     Active Substance: ACETAMINOPHEN\OXYCODONE HYDROCHLORIDE
     Indication: PRODUCT USED FOR UNKNOWN INDICATION
     Dosage: UNK UNK, UNKNOWN FREQ.
     Route: 065
  9. PARACETAMOL [Concomitant]
     Active Substance: ACETAMINOPHEN
     Indication: PRODUCT USED FOR UNKNOWN INDICATION
     Route: 048
  10. AVASTIN [Suspect]
     Active Substance: BEVACIZUMAB
     Route: 042
  11. BENADRYL [Concomitant]
     Active Substance: DIPHENHYDRAMINE HYDROCHLORIDE
     Indication: PRODUCT USED FOR UNKNOWN INDICATION
     Route: 048
  12. PEMETREXED [Concomitant]
     Active Substance: PEMETREXED
     Route: 042
  13. ERLOTINIB [Suspect]
     Active Substance: ERLOTINIB
     Indication: BRONCHIAL CARCINOMA
     Route: 048
  14. CARBOPLATIN. [Concomitant]
     Active Substance: CARBOPLATIN
     Indication: PRODUCT USED FOR UNKNOWN INDICATION
     Route: 042
  15. DECADRON [Concomitant]
     Active Substance: DEXAMETHASONE
     Indication: PRODUCT USED FOR UNKNOWN INDICATION
     Route: 042

REACTIONS (7)
  - Death [Fatal]
  - Constipation [Unknown]
  - Dyspnoea [Unknown]
  - Fatigue [Unknown]
  - Decreased appetite [Unknown]
  - Weight decreased [Unknown]
  - Back pain [Unknown]
